FAERS Safety Report 11680721 (Version 4)
Quarter: 2016Q1

REPORT INFORMATION
  Report Type: Spontaneous
  Country: GB (occurrence: GB)
  Receive Date: 20151029
  Receipt Date: 20160105
  Transmission Date: 20160525
  Serious: Yes (Hospitalization, Other)
  Sender: FDA-Public Use
  Company Number: GB-AMGEN-GBRSP2015113301

PATIENT
  Age: 74 Year
  Sex: Female

DRUGS (4)
  1. HERCEPTIN [Concomitant]
     Active Substance: TRASTUZUMAB
     Dosage: UNK
  2. EPIRUBICIN [Concomitant]
     Active Substance: EPIRUBICIN
     Dosage: UNK
     Dates: start: 2015
  3. NEULASTA [Suspect]
     Active Substance: PEGFILGRASTIM
     Indication: PRODUCT USED FOR UNKNOWN INDICATION
     Dosage: UNK, 3 WEEKLY POST CYCLE 1
     Route: 065
     Dates: start: 2015
  4. CYCLOPHOSPHAMIDE. [Concomitant]
     Active Substance: CYCLOPHOSPHAMIDE
     Dosage: UNK
     Dates: start: 2015

REACTIONS (5)
  - Lower respiratory tract infection [Recovered/Resolved]
  - Pain [Unknown]
  - Nasopharyngitis [Recovered/Resolved]
  - Body temperature increased [Unknown]
  - Alopecia [Unknown]

NARRATIVE: CASE EVENT DATE: 20151013
